FAERS Safety Report 16280370 (Version 1)
Quarter: 2019Q2

REPORT INFORMATION
  Report Type: Other
  Country: IT (occurrence: IT)
  Receive Date: 20190507
  Receipt Date: 20190507
  Transmission Date: 20190711
  Serious: Yes (Life-Threatening, Other)
  Sender: FDA-Public Use
  Company Number: IT-LUPIN PHARMACEUTICALS INC.-2019-02769

PATIENT
  Age: 39 Year
  Sex: Female

DRUGS (5)
  1. DEPAKIN [Suspect]
     Active Substance: VALPROATE SODIUM
     Indication: PRODUCT USED FOR UNKNOWN INDICATION
     Dosage: 25 GRAM, SINGLE
     Route: 048
     Dates: start: 20190314, end: 20190314
  2. INDERAL [Suspect]
     Active Substance: PROPRANOLOL HYDROCHLORIDE
     Indication: PRODUCT USED FOR UNKNOWN INDICATION
     Dosage: 1.2 GRAM, SINGLE
     Route: 048
     Dates: start: 20190314, end: 20190314
  3. GABAPENTIN. [Suspect]
     Active Substance: GABAPENTIN
     Indication: PRODUCT USED FOR UNKNOWN INDICATION
     Dosage: 16.2 GM, SINGLE
     Route: 048
     Dates: start: 20190314, end: 20190314
  4. DAPAROX [PAROXETINE HYDROCHLORIDE] [Suspect]
     Active Substance: PAROXETINE HYDROCHLORIDE
     Indication: PRODUCT USED FOR UNKNOWN INDICATION
     Dosage: 560 MILLIGRAM, SINGLE
     Route: 065
     Dates: start: 20190314, end: 20190314
  5. ESOMEPRAZOLE SODIUM. [Suspect]
     Active Substance: ESOMEPRAZOLE SODIUM
     Indication: PRODUCT USED FOR UNKNOWN INDICATION
     Dosage: UNK
     Route: 048
     Dates: start: 20190314, end: 20190314

REACTIONS (2)
  - Overdose [Unknown]
  - Coma [Unknown]

NARRATIVE: CASE EVENT DATE: 20190314
